FAERS Safety Report 4292464-1 (Version None)
Quarter: 2004Q1

REPORT INFORMATION
  Report Type: 
  Country: None (occurrence: None)
  Receive Date: 20040211
  Receipt Date: 20040211
  Transmission Date: 20041129
  Serious: Yes (Other)
  Sender: FDA-Public Use
  Company Number: None

PATIENT
  Sex: Female
  Weight: 52.1637 kg

DRUGS (1)
  1. RESTYLANE 0.7CC / MEDICIS PHAR. [Suspect]
     Indication: SKIN WRINKLING
     Dosage: 0.7 CC Q 6-12 MOS./ SUBQ
     Route: 058
     Dates: start: 20040123

REACTIONS (3)
  - INJECTION SITE ERYTHEMA [None]
  - INJECTION SITE MASS [None]
  - SKIN DISCOLOURATION [None]
